FAERS Safety Report 5542777-8 (Version None)
Quarter: 2007Q4

REPORT INFORMATION
  Report Type: 
  Country: None (occurrence: None)
  Receive Date: 20071206
  Receipt Date: 20071127
  Transmission Date: 20080405
  Serious: Yes (Hospitalization)
  Sender: FDA-Public Use
  Company Number: 440004J07USA

PATIENT
  Age: 75 Year
  Sex: Female

DRUGS (1)
  1. ZORBTIVE [Suspect]
     Indication: OFF LABEL USE

REACTIONS (1)
  - CLOSTRIDIAL INFECTION [None]
